FAERS Safety Report 10390505 (Version 1)
Quarter: 2014Q3

REPORT INFORMATION
  Report Type: Spontaneous
  Country: US (occurrence: US)
  Receive Date: 20140818
  Receipt Date: 20140818
  Transmission Date: 20150326
  Serious: No
  Sender: FDA-Public Use
  Company Number: US-PFIZER INC-2014227457

PATIENT
  Age: 67 Year
  Sex: Male
  Weight: 84.81 kg

DRUGS (6)
  1. CHLORDIAZEPOXIDE [Concomitant]
     Active Substance: CHLORDIAZEPOXIDE
     Indication: SLEEP DISORDER
     Dosage: 25 MG, UNK
  2. CITALOPRAM [Concomitant]
     Active Substance: CITALOPRAM HYDROBROMIDE
     Dosage: 10 MG, UNK
  3. OMEPRAZOLE. [Concomitant]
     Active Substance: OMEPRAZOLE
     Dosage: 40 MG, 2X/DAY
  4. NEURONTIN [Suspect]
     Active Substance: GABAPENTIN
     Indication: NEUROPATHY PERIPHERAL
     Dosage: 1200 MG, (2 ORAL CAPSULES OF 400MG IN THE MORNING AND 1 ORAL CAPSULE OF 400MG AT THE NIGHT) DAILY
     Route: 048
     Dates: start: 2010, end: 201405
  5. BABY ASPIRIN [Concomitant]
     Active Substance: ASPIRIN
     Dosage: UNK
  6. NAPROXEN. [Concomitant]
     Active Substance: NAPROXEN
     Dosage: 500 MG, 2X/DAY

REACTIONS (3)
  - Ejaculation disorder [Unknown]
  - Drug ineffective [Unknown]
  - Neck pain [Unknown]

NARRATIVE: CASE EVENT DATE: 2014
